FAERS Safety Report 5797307-2 (Version None)
Quarter: 2008Q3

REPORT INFORMATION
  Report Type: 
  Country: None (occurrence: None)
  Receive Date: 20080701
  Receipt Date: 20080623
  Transmission Date: 20090109
  Serious: Yes (Other)
  Sender: FDA-Public Use
  Company Number: DK-PFIZER INC-2008052618

PATIENT
  Sex: Female
  Weight: 62 kg

DRUGS (11)
  1. AMLODIPINE [Suspect]
     Indication: HYPERTENSION
     Route: 048
  2. AMLODIPINE [Suspect]
  3. DIOVANE [Concomitant]
  4. WARFARIN SODIUM [Concomitant]
  5. KODIPAR [Concomitant]
  6. GLUCOSAMINE [Concomitant]
  7. ALPROX [Concomitant]
  8. VITAMINS [Concomitant]
  9. FISH OIL [Concomitant]
  10. GARLIC [Concomitant]
  11. GINGER [Concomitant]

REACTIONS (10)
  - ARTHRALGIA [None]
  - CONFUSIONAL STATE [None]
  - HALLUCINATION [None]
  - MEMORY IMPAIRMENT [None]
  - NAUSEA [None]
  - OEDEMA PERIPHERAL [None]
  - PAIN IN EXTREMITY [None]
  - PSORIASIS [None]
  - RASH GENERALISED [None]
  - VISION BLURRED [None]
